FAERS Safety Report 4937027-7 (Version None)
Quarter: 2006Q1

REPORT INFORMATION
  Report Type: 
  Country: None (occurrence: None)
  Receive Date: 20060309
  Receipt Date: 20051011
  Transmission Date: 20060701
  Serious: Yes (Hospitalization, Disabling)
  Sender: FDA-Public Use
  Company Number: US-MERCK-0510USA07084

PATIENT
  Age: 58 Year
  Sex: Male
  Weight: 91 kg

DRUGS (14)
  1. VIOXX [Suspect]
     Indication: ARTHRALGIA
     Route: 048
     Dates: start: 19991106, end: 20011208
  2. BUSPAR [Concomitant]
     Route: 065
  3. FLONASE [Concomitant]
     Route: 065
  4. CELEXA [Concomitant]
     Route: 065
  5. CLARITIN [Concomitant]
     Route: 065
  6. CYCLOBENZAPRINE HYDROCHLORIDE [Concomitant]
     Route: 065
  7. ERY-TAB [Concomitant]
     Route: 065
  8. METHYLPREDNISOLONE [Concomitant]
     Route: 065
  9. CIPRO [Concomitant]
     Route: 065
  10. ZOCOR [Concomitant]
     Route: 065
     Dates: start: 20011201, end: 20020801
  11. NITROGLYCERIN [Concomitant]
     Route: 065
  12. HYTRIN [Concomitant]
     Indication: BENIGN PROSTATIC HYPERPLASIA
     Route: 065
     Dates: start: 19980324, end: 20011208
  13. ASPIRIN [Concomitant]
     Indication: PROPHYLAXIS
     Route: 065
     Dates: start: 19950101
  14. LOPID [Concomitant]
     Route: 065
     Dates: start: 20001201

REACTIONS (12)
  - ARTHROPATHY [None]
  - BLOOD TRIGLYCERIDES INCREASED [None]
  - BRAIN SCAN ABNORMAL [None]
  - CHEST DISCOMFORT [None]
  - CORONARY ARTERY DISEASE [None]
  - DEHYDRATION [None]
  - DIABETES INSIPIDUS [None]
  - DIZZINESS [None]
  - HAEMORRHOIDS [None]
  - MYOCARDIAL INFARCTION [None]
  - PEPTIC ULCER [None]
  - SLEEP APNOEA SYNDROME [None]
